FAERS Safety Report 20981630 (Version 2)
Quarter: 2022Q3

REPORT INFORMATION
  Report Type: Spontaneous
  Country: US (occurrence: US)
  Receive Date: 20220620
  Receipt Date: 20220920
  Transmission Date: 20221027
  Serious: Yes (Other)
  Sender: FDA-Public Use
  Company Number: US-SEAGEN-2022SGN05660

PATIENT
  Age: 47 Year
  Sex: Female

DRUGS (10)
  1. TIVDAK [Suspect]
     Active Substance: TISOTUMAB VEDOTIN-TFTV
     Indication: Cervix carcinoma recurrent
     Dosage: UNK
     Route: 065
     Dates: start: 20211117, end: 20220706
  2. TYLENOL [Concomitant]
     Active Substance: ACETAMINOPHEN
     Indication: Pain
     Dosage: 650 MG, AS NEEDED
     Route: 048
  3. NORVASC [Concomitant]
     Active Substance: AMLODIPINE BESYLATE
     Dosage: 5 MG, QD
     Route: 048
     Dates: start: 20210723
  4. LEXAPRO [Concomitant]
     Active Substance: ESCITALOPRAM OXALATE
     Dosage: 20 MG, QD
     Route: 048
  5. ATIVAN [Concomitant]
     Active Substance: LORAZEPAM
     Indication: Anxiety
     Dosage: 0.5 MG, Q6HR, AS NEEDED
     Route: 048
     Dates: start: 20220112
  6. ATIVAN [Concomitant]
     Active Substance: LORAZEPAM
     Indication: Nausea
  7. MAGNESIUM CHLORIDE [Concomitant]
     Active Substance: MAGNESIUM CHLORIDE
     Dosage: 71.5 MG - 119 MG, TAKE 2 TABLETS BY MOUTH DAILY
     Route: 048
     Dates: start: 20210811
  8. TOPROL XL [Concomitant]
     Active Substance: METOPROLOL SUCCINATE
     Dosage: 25 MG, QD
     Route: 048
  9. REMERON [Concomitant]
     Active Substance: MIRTAZAPINE
     Dosage: 15 MG, QD AT NIGHT
     Route: 048
     Dates: start: 20201217
  10. PROTONIX [Concomitant]
     Active Substance: PANTOPRAZOLE SODIUM
     Dosage: 40 MG, QD
     Route: 048

REACTIONS (2)
  - Cataract [Not Recovered/Not Resolved]
  - Corneal erosion [Recovered/Resolved]

NARRATIVE: CASE EVENT DATE: 20220608
